FAERS Safety Report 4628457-1 (Version None)
Quarter: 2005Q2

REPORT INFORMATION
  Report Type: 
  Country: None (occurrence: None)
  Receive Date: 20050404
  Receipt Date: 20050325
  Transmission Date: 20051028
  Serious: Yes (Hospitalization)
  Sender: FDA-Public Use
  Company Number: ZONI002130

PATIENT
  Age: 72 Year
  Sex: Female

DRUGS (10)
  1. EXCEGRAN (ZONISAMIDE) [Suspect]
     Indication: CONVULSION PROPHYLAXIS
     Dosage: 200 MG, 1 IN 1 D, ORAL
     Route: 048
     Dates: start: 20050210, end: 20050309
  2. NORVASC [Concomitant]
  3. LIPOVAS (SIMVASTATIN) [Concomitant]
  4. DEPAS (ETIZOLAM) [Concomitant]
  5. ASPIRIN [Concomitant]
  6. GRANULE (PL GRAN.) [Concomitant]
  7. HUSTAZOL (CLOPERASTINE HYDROCHLORIDE) [Concomitant]
  8. DASEN (SERRAPEPTASE) [Concomitant]
  9. CALAONA (PARACETAMOL) [Concomitant]
  10. LENDORM [Concomitant]

REACTIONS (8)
  - DEHYDRATION [None]
  - INSOMNIA [None]
  - NASOPHARYNGITIS [None]
  - PALPITATIONS [None]
  - PRURITUS [None]
  - RASH [None]
  - TOXIC SKIN ERUPTION [None]
  - UPPER RESPIRATORY TRACT INFLAMMATION [None]
